FAERS Safety Report 6754990-2 (Version None)
Quarter: 2010Q2

REPORT INFORMATION
  Report Type: 
  Country: None (occurrence: None)
  Receive Date: 20100602
  Receipt Date: 20100528
  Transmission Date: 20101027
  Serious: Yes (Hospitalization)
  Sender: FDA-Public Use
  Company Number: 2010SP005081

PATIENT
  Age: 33 Year
  Sex: Female
  Weight: 44 kg

DRUGS (9)
  1. FOLLISTIM [Suspect]
     Indication: IN VITRO FERTILISATION
     Dosage: 150 IU; QD; SC
     Route: 058
     Dates: start: 20071012, end: 20071022
  2. BUSERECUR [Concomitant]
  3. DUOLUTION [Concomitant]
  4. CHORIONIC GONADOTROPIN [Concomitant]
  5. LUTORAL [Concomitant]
  6. BUFFERIN [Concomitant]
  7. PROGE DEPOT [Concomitant]
  8. PELANIN [Concomitant]
  9. PELANIN [Concomitant]

REACTIONS (4)
  - CAESAREAN SECTION [None]
  - PLACENTA PRAEVIA [None]
  - PREGNANCY [None]
  - SMALL FOR DATES BABY [None]
